FAERS Safety Report 11796630 (Version 1)
Quarter: 2015Q4

REPORT INFORMATION
  Report Type: Spontaneous
  Country: BR (occurrence: BR)
  Receive Date: 20151203
  Receipt Date: 20151203
  Transmission Date: 20160305
  Serious: No
  Sender: FDA-Public Use
  Company Number: BR-GLENMARK PHARMACEUTICALS INC, USA.-2015GMK019115

PATIENT
  Sex: Female

DRUGS (1)
  1. PRAMIPEXOLE. [Suspect]
     Active Substance: PRAMIPEXOLE
     Indication: PARKINSON^S DISEASE
     Dosage: UNK

REACTIONS (3)
  - Parkinson^s disease [None]
  - Exposure during pregnancy [Unknown]
  - Condition aggravated [Unknown]
